FAERS Safety Report 13565302 (Version 5)
Quarter: 2017Q3

REPORT INFORMATION
  Report Type: Spontaneous
  Country: US (occurrence: US)
  Receive Date: 20170519
  Receipt Date: 20170807
  Transmission Date: 20171127
  Serious: No
  Sender: FDA-Public Use
  Company Number: US-009507513-1705USA004681

PATIENT
  Age: 37 Year
  Sex: Female
  Weight: 45.35 kg

DRUGS (3)
  1. FOLLISTIM [Concomitant]
     Active Substance: FOLLITROPIN
     Dosage: UNK
  2. GANIRELIX ACETATE INJECTION [Concomitant]
     Active Substance: GANIRELIX ACETATE
     Dosage: UNK
  3. PREGNYL [Suspect]
     Active Substance: CHORIOGONADOTROPIN ALFA
     Dosage: 5000 IU, ONCE (REPORTED AS ^X1DAY^); STRENGTH REPORTED AS ^10^
     Route: 030
     Dates: start: 20170503, end: 20170503

REACTIONS (5)
  - Poor response to ovulation induction [Unknown]
  - Human chorionic gonadotropin negative [Unknown]
  - Human chorionic gonadotropin positive [Unknown]
  - Drug administration error [Unknown]
  - Drug ineffective [Not Recovered/Not Resolved]

NARRATIVE: CASE EVENT DATE: 20170503
